FAERS Safety Report 9728330 (Version 1)
Quarter: 2013Q4

REPORT INFORMATION
  Report Type: Spontaneous
  Country: US (occurrence: US)
  Receive Date: 20131204
  Receipt Date: 20131204
  Transmission Date: 20140711
  Serious: Yes (Death)
  Sender: FDA-Public Use
  Company Number: US-ROXANE LABORATORIES, INC.-2013-RO-01891RO

PATIENT
  Sex: Male

DRUGS (2)
  1. OXYCODONE [Suspect]
  2. UNSPECIFIED INGREDIENT [Suspect]

REACTIONS (1)
  - Intentional overdose [Fatal]
